FAERS Safety Report 6856522-7 (Version None)
Quarter: 2010Q3

REPORT INFORMATION
  Report Type: 
  Country: None (occurrence: None)
  Receive Date: 20100719
  Receipt Date: 20100707
  Transmission Date: 20110219
  Serious: Yes (Death, Other)
  Sender: FDA-Public Use
  Company Number: JP-GENZYME-THYM-1001600

PATIENT
  Sex: Female
  Weight: 44 kg

DRUGS (3)
  1. THYMOGLOBULIN [Suspect]
     Indication: APLASTIC ANAEMIA
     Dosage: 160 MG, QD
     Route: 042
     Dates: start: 20090518, end: 20090522
  2. METHYLPREDNISOLONE SODIUM SUCCINATE [Concomitant]
     Indication: PREMEDICATION
     Dosage: UNK
     Dates: start: 20090518, end: 20090529
  3. PREDNISOLONE ACETATE [Concomitant]
     Indication: PREMEDICATION
     Dosage: UNK
     Dates: start: 20090530, end: 20090622

REACTIONS (7)
  - ANURIA [None]
  - COMA [None]
  - DELIRIUM [None]
  - ENCEPHALITIS BRAIN STEM [None]
  - LIVER DISORDER [None]
  - PYREXIA [None]
  - THROMBOCYTOPENIA [None]
